FAERS Safety Report 15555913 (Version 1)
Quarter: 2018Q4

REPORT INFORMATION
  Report Type: Report from Study
  Country: CA (occurrence: CA)
  Receive Date: 20181026
  Receipt Date: 20181026
  Transmission Date: 20190205
  Serious: Yes (Hospitalization)
  Sender: FDA-Public Use
  Company Number: CA-PFIZER INC-2017342313

PATIENT
  Age: 40 Year
  Sex: Male

DRUGS (7)
  1. PREDNISONE. [Concomitant]
     Active Substance: PREDNISONE
     Indication: COLITIS ULCERATIVE
     Dosage: 30 MG, QD
  2. ENTYVIO [Suspect]
     Active Substance: VEDOLIZUMAB
     Indication: COLITIS ULCERATIVE
     Dosage: 300 MG, UNK
     Route: 042
     Dates: start: 20161105
  3. CORTENEMA [Concomitant]
     Active Substance: HYDROCORTISONE
     Dosage: UNK
  4. ENTYVIO [Suspect]
     Active Substance: VEDOLIZUMAB
     Dosage: 300 MG, CYCLIC (Q4WEEKS)
     Route: 042
     Dates: start: 20170828, end: 20180417
  5. PANTOPRAZOLE [Concomitant]
     Active Substance: PANTOPRAZOLE
     Dosage: 40 MG, QD
     Route: 048
     Dates: start: 2013
  6. TECTA [Suspect]
     Active Substance: PANTOPRAZOLE MAGNESIUM
     Indication: GASTROOESOPHAGEAL REFLUX DISEASE
     Dosage: UNK UNK, QD
     Route: 065
     Dates: start: 20160715
  7. MEZAVANT [Concomitant]
     Active Substance: MESALAMINE
     Dosage: UNK UNK, QD
     Route: 048
     Dates: start: 2013

REACTIONS (3)
  - Faecal calprotectin increased [Unknown]
  - Colitis ulcerative [Unknown]
  - Drug ineffective [Unknown]

NARRATIVE: CASE EVENT DATE: 201611
